FAERS Safety Report 18146930 (Version 1)
Quarter: 2020Q3

REPORT INFORMATION
  Report Type: Spontaneous
  Country: DE (occurrence: DE)
  Receive Date: 20200814
  Receipt Date: 20200814
  Transmission Date: 20201103
  Serious: Yes (Other)
  Sender: FDA-Public Use
  Company Number: DE-SUN PHARMACEUTICAL INDUSTRIES LTD-2020RR-257417

PATIENT
  Age: 1 Day
  Sex: Female
  Weight: 2.03 kg

DRUGS (4)
  1. DULOXETIN [Concomitant]
     Active Substance: DULOXETINE
     Indication: DEPRESSION
     Dosage: 90 [MG/D ]
     Route: 064
  2. SERTRALINE [Suspect]
     Active Substance: SERTRALINE HYDROCHLORIDE
     Indication: DEPRESSION
     Dosage: 200 [MG/D (BIS 50) ] ()
     Route: 064
     Dates: start: 20190613, end: 20191230
  3. ATOSIL [Concomitant]
     Indication: RESTLESSNESS
     Dosage: 30 [MG/D (BIS 20) ]/ INITIALLY DURING THE HOSPITAL STAY EVERY DAY, THEN IF REQUIRED. ()
     Route: 064
     Dates: start: 20190613, end: 20191219
  4. INFLUVAC [Concomitant]
     Active Substance: INFLUENZA VIRUS VACCINE TRIVALENT TYPE A+B
     Indication: INFLUENZA IMMUNISATION
     Dosage: INFLUVAC TETRA  SAISON 19/20 ()
     Route: 064
     Dates: start: 20191210, end: 20191210

REACTIONS (4)
  - Small for dates baby [Unknown]
  - Foetal exposure during pregnancy [Recovered/Resolved]
  - Hypoglycaemia neonatal [Recovered/Resolved]
  - Agitation neonatal [Recovered/Resolved]

NARRATIVE: CASE EVENT DATE: 20191230
